FAERS Safety Report 21623296 (Version 1)
Quarter: 2022Q4

REPORT INFORMATION
  Report Type: Spontaneous
  Country: TW (occurrence: TW)
  Receive Date: 20221121
  Receipt Date: 20221121
  Transmission Date: 20230112
  Serious: Yes (Other)
  Sender: FDA-Public Use
  Company Number: TW-JAZZ-2022-TW-035380

PATIENT
  Age: 8 Year
  Sex: Male

DRUGS (4)
  1. ASPARAGINASE [Suspect]
     Active Substance: ASPARAGINASE
     Indication: Precursor T-lymphoblastic lymphoma/leukaemia
     Dosage: UNK
  2. VINCRISTINE [Suspect]
     Active Substance: VINCRISTINE
     Indication: Precursor T-lymphoblastic lymphoma/leukaemia
     Dosage: UNK
  3. EPIRUBICIN [Suspect]
     Active Substance: EPIRUBICIN
     Indication: Precursor T-lymphoblastic lymphoma/leukaemia
     Dosage: UNK
  4. PREDNISOLONE [Suspect]
     Active Substance: PREDNISOLONE
     Indication: Precursor T-lymphoblastic lymphoma/leukaemia
     Dosage: UNK

REACTIONS (1)
  - Haemolytic uraemic syndrome [Unknown]
